FAERS Safety Report 4618339-3 (Version None)
Quarter: 2005Q1

REPORT INFORMATION
  Report Type: 
  Country: None (occurrence: None)
  Receive Date: 20050324
  Receipt Date: 20050308
  Transmission Date: 20050727
  Serious: Yes (Hospitalization)
  Sender: FDA-Public Use
  Company Number: FR_050306000

PATIENT
  Age: 68 Year
  Sex: Female

DRUGS (4)
  1. ZYPREXA [Suspect]
     Indication: PSYCHOTIC DISORDER
     Dosage: 5 MG DAY
     Dates: start: 20030301
  2. DEROXAT (PAROXETINE HYDROCHLORIDE) [Concomitant]
  3. ATARAX (ALPRAZOLAM) [Concomitant]
  4. KARDEGIC (ACETYLSALICYLATE LYSINE) [Concomitant]

REACTIONS (2)
  - ATRIAL FIBRILLATION [None]
  - CEREBRAL ISCHAEMIA [None]
